FAERS Safety Report 6218191-9 (Version None)
Quarter: 2009Q2

REPORT INFORMATION
  Report Type: 
  Country: None (occurrence: None)
  Receive Date: 20090608
  Receipt Date: 20090604
  Transmission Date: 20091009
  Serious: Yes (Other)
  Sender: FDA-Public Use
  Company Number: FR-RB-016511-09

PATIENT
  Sex: Male

DRUGS (9)
  1. SUBUTEX [Suspect]
     Route: 060
  2. SUBUTEX [Suspect]
     Dosage: DOSING INFORMATION UNKNOWN.
     Route: 045
  3. HELICIDINE [Concomitant]
     Indication: DRUG USE FOR UNKNOWN INDICATION
     Dosage: DOSING INFORMATION UNKNOWN.
     Route: 065
  4. RUBOZINC [Concomitant]
     Indication: DRUG USE FOR UNKNOWN INDICATION
     Dosage: DOSING INFORMATION UNKNOWN.
     Route: 065
  5. IBUPROFEN [Concomitant]
     Indication: DRUG USE FOR UNKNOWN INDICATION
     Dosage: DOSING INFORMATION UNKNOWN.
     Route: 065
  6. PERMIXON [Concomitant]
     Indication: DRUG USE FOR UNKNOWN INDICATION
     Dosage: DOSING INFORMATION UNKNOWN.
     Route: 065
  7. TRANXENE [Concomitant]
     Indication: DRUG USE FOR UNKNOWN INDICATION
     Route: 065
  8. PYOSTACINE [Concomitant]
     Indication: DRUG USE FOR UNKNOWN INDICATION
     Dosage: DOSING INFORMATION UNKNOWN.
     Route: 065
  9. OROKEN [Concomitant]
     Indication: DRUG USE FOR UNKNOWN INDICATION
     Dosage: DOSING INFORMATION UNKNOWN.
     Route: 065

REACTIONS (5)
  - ANXIETY [None]
  - DEPRESSION [None]
  - INCORRECT ROUTE OF DRUG ADMINISTRATION [None]
  - SUICIDAL IDEATION [None]
  - TENSION [None]
